FAERS Safety Report 5448994-X (Version None)
Quarter: 2007Q3

REPORT INFORMATION
  Report Type: 
  Country: None (occurrence: None)
  Receive Date: 20070911
  Receipt Date: 20070905
  Transmission Date: 20080115
  Serious: Yes (Hospitalization)
  Sender: FDA-Public Use
  Company Number: AT-ASTRAZENECA-2007PK01577

PATIENT
  Age: 16204 Day
  Sex: Male
  Weight: 80 kg

DRUGS (2)
  1. CRESTOR [Suspect]
     Indication: HYPERLIPIDAEMIA
     Route: 048
     Dates: start: 20060301, end: 20070411
  2. BEZALIP RET [Concomitant]
     Indication: HYPERLIPIDAEMIA
     Route: 048
     Dates: start: 20060301

REACTIONS (4)
  - MUSCLE INJURY [None]
  - SURGERY [None]
  - TENDON PAIN [None]
  - TENDON RUPTURE [None]
